FAERS Safety Report 25356502 (Version 3)
Quarter: 2025Q3

REPORT INFORMATION
  Report Type: Spontaneous
  Country: CN (occurrence: CN)
  Receive Date: 20250526
  Receipt Date: 20250710
  Transmission Date: 20251021
  Serious: Yes (Hospitalization)
  Sender: GLAXOSMITHKLINE
  Company Number: CN-GLAXOSMITHKLINE-CN2025APC063134

PATIENT
  Age: 18 Year
  Sex: Male
  Weight: 40 kg

DRUGS (3)
  1. NUCALA [Suspect]
     Active Substance: MEPOLIZUMAB
     Indication: Langerhans^ cell histiocytosis
  2. NUCALA [Suspect]
     Active Substance: MEPOLIZUMAB
     Indication: Azotaemia
  3. NUCALA [Suspect]
     Active Substance: MEPOLIZUMAB
     Indication: Angiolymphoid hyperplasia with eosinophilia

REACTIONS (1)
  - Platelet count decreased [Recovered/Resolved]

NARRATIVE: CASE EVENT DATE: 20250301
